FAERS Safety Report 9728033 (Version 1)
Quarter: 2013Q4

REPORT INFORMATION
  Report Type: Spontaneous
  Country: FR (occurrence: None)
  Receive Date: 20131127
  Receipt Date: 20131127
  Transmission Date: 20140711
  Serious: Yes (Life-Threatening)
  Sender: FDA-Public Use
  Company Number: 2028524

PATIENT
  Age: 63 Year
  Sex: Male

DRUGS (2)
  1. CARBOPLATIN [Suspect]
     Indication: CHEMOTHERAPY
     Dosage: UNSPECIFIED, UNKNOWN, INTRAVENOUS DRIP
     Dates: start: 20130905
  2. ALIMTA [Suspect]
     Indication: CHEMOTHERAPY
     Dosage: UNSPECIFIED, UNKNOWN, INTRAVENOUS DRIP
     Dates: start: 20130905

REACTIONS (1)
  - Pancytopenia [None]
